FAERS Safety Report 12205079 (Version 1)
Quarter: 2016Q1

REPORT INFORMATION
  Report Type: Spontaneous
  Country: US (occurrence: US)
  Receive Date: 20160323
  Receipt Date: 20160323
  Transmission Date: 20160526
  Serious: Yes (Other)
  Sender: FDA-Public Use
  Company Number: US-TEVA-644101USA

PATIENT
  Age: 40 Year
  Sex: Female

DRUGS (1)
  1. COPAXONE [Suspect]
     Active Substance: GLATIRAMER ACETATE
     Indication: MULTIPLE SCLEROSIS
     Dosage: UNKNOWN FORM STRENGTH
     Route: 065

REACTIONS (12)
  - Muscle spasms [Unknown]
  - Dependence [Unknown]
  - Hypothyroidism [Unknown]
  - Movement disorder [Unknown]
  - Pain [Not Recovered/Not Resolved]
  - Multiple sclerosis relapse [Unknown]
  - Neurogenic bladder [Unknown]
  - Cognitive disorder [Unknown]
  - Hypertonic bladder [Unknown]
  - Arthritis [Not Recovered/Not Resolved]
  - Mental disorder [Unknown]
  - Paranoia [Unknown]
